FAERS Safety Report 15946550 (Version 4)
Quarter: 2019Q3

REPORT INFORMATION
  Report Type: Spontaneous
  Country: US (occurrence: US)
  Receive Date: 20190211
  Receipt Date: 20190728
  Transmission Date: 20191004
  Serious: Yes (Other)
  Sender: FDA-Public Use
  Company Number: US-ASTRAZENECA-2018SF21664

PATIENT
  Age: 687 Month
  Sex: Male
  Weight: 79.8 kg

DRUGS (30)
  1. NEXIUM [Suspect]
     Active Substance: ESOMEPRAZOLE MAGNESIUM
     Indication: GASTROOESOPHAGEAL REFLUX DISEASE
     Route: 048
     Dates: start: 20131213, end: 20150623
  2. LOSARTAN. [Concomitant]
     Active Substance: LOSARTAN
  3. LANTUS [Concomitant]
     Active Substance: INSULIN GLARGINE
  4. SEROQUEL [Concomitant]
     Active Substance: QUETIAPINE FUMARATE
  5. DIVALPROEX [Concomitant]
     Active Substance: DIVALPROEX SODIUM
  6. TORSEMIDE. [Concomitant]
     Active Substance: TORSEMIDE
  7. NEXIUM [Suspect]
     Active Substance: ESOMEPRAZOLE MAGNESIUM
     Indication: GASTROOESOPHAGEAL REFLUX DISEASE
     Route: 048
     Dates: start: 201312, end: 201506
  8. PANTOPRAZOLE [Suspect]
     Active Substance: PANTOPRAZOLE
     Indication: GASTROOESOPHAGEAL REFLUX DISEASE
     Route: 065
     Dates: start: 201510, end: 201701
  9. POTASSIUM CHLORIDE. [Concomitant]
     Active Substance: POTASSIUM CHLORIDE
  10. METFORMIN [Concomitant]
     Active Substance: METFORMIN HYDROCHLORIDE
  11. OMEPRAZOLE. [Suspect]
     Active Substance: OMEPRAZOLE
     Indication: GASTROOESOPHAGEAL REFLUX DISEASE
     Dosage: GENERIC
     Route: 065
     Dates: start: 201204, end: 201809
  12. OLANZAPINE. [Concomitant]
     Active Substance: OLANZAPINE
  13. HYDROCODONE-ACETAMINOPHEN [Concomitant]
     Active Substance: ACETAMINOPHEN\HYDROCODONE
  14. QUETIAPINE. [Concomitant]
     Active Substance: QUETIAPINE
  15. AZITHROMYCIN ANHYDROUS. [Concomitant]
     Active Substance: AZITHROMYCIN ANHYDROUS
  16. LYRICA [Concomitant]
     Active Substance: PREGABALIN
  17. PROMETHAZINE [Concomitant]
     Active Substance: PROMETHAZINE HYDROCHLORIDE
  18. OXYBUTYNIN. [Concomitant]
     Active Substance: OXYBUTYNIN CHLORIDE
  19. NEXIUM [Suspect]
     Active Substance: ESOMEPRAZOLE MAGNESIUM
     Indication: GASTROOESOPHAGEAL REFLUX DISEASE
     Route: 048
     Dates: start: 2012, end: 2015
  20. NEXIUM [Suspect]
     Active Substance: ESOMEPRAZOLE MAGNESIUM
     Indication: GASTROOESOPHAGEAL REFLUX DISEASE
     Route: 048
     Dates: start: 201312, end: 201506
  21. ONGLYZA [Concomitant]
     Active Substance: SAXAGLIPTIN HYDROCHLORIDE
  22. SIMVASTATIN. [Concomitant]
     Active Substance: SIMVASTATIN
     Indication: BLOOD CHOLESTEROL
     Dates: start: 201205, end: 201401
  23. RANITIDINE. [Concomitant]
     Active Substance: RANITIDINE
  24. ROPINIROLE. [Concomitant]
     Active Substance: ROPINIROLE
  25. FLOVENT [Concomitant]
     Active Substance: FLUTICASONE PROPIONATE
  26. CEFUROXIME. [Concomitant]
     Active Substance: CEFUROXIME
  27. PIOGLITAZONE. [Concomitant]
     Active Substance: PIOGLITAZONE
  28. PROAIR HFA [Concomitant]
     Active Substance: ALBUTEROL SULFATE
  29. TRAMADOL. [Concomitant]
     Active Substance: TRAMADOL
     Indication: PAIN
     Dates: start: 201204, end: 201706
  30. OXYCODONE [Concomitant]
     Active Substance: OXYCODONE

REACTIONS (4)
  - Renal failure [Unknown]
  - Acute kidney injury [Unknown]
  - Chronic kidney disease [Not Recovered/Not Resolved]
  - Renal injury [Unknown]

NARRATIVE: CASE EVENT DATE: 201610
